FAERS Safety Report 23240562 (Version 1)
Quarter: 2023Q4

REPORT INFORMATION
  Report Type: Spontaneous
  Country: US (occurrence: None)
  Receive Date: 20231129
  Receipt Date: 20231129
  Transmission Date: 20240109
  Serious: No
  Sender: FDA-Public Use
  Company Number: None

PATIENT
  Sex: Male

DRUGS (6)
  1. HUMIRA [Suspect]
     Active Substance: ADALIMUMAB
     Indication: Psoriatic arthropathy
     Dosage: 40MG/0.4ML EVERY 14 DAYS SQ
     Route: 058
     Dates: start: 20220107
  2. AMLODIPINE [Concomitant]
     Active Substance: AMLODIPINE BESYLATE
  3. KEPPRA [Concomitant]
     Active Substance: LEVETIRACETAM
  4. ZONEGRAN [Concomitant]
     Active Substance: ZONISAMIDE
  5. CLONAZEPAM [Concomitant]
     Active Substance: CLONAZEPAM
  6. FOLIC ACID [Concomitant]

REACTIONS (1)
  - Drug ineffective [None]
